FAERS Safety Report 9262805 (Version 2)
Quarter: 2013Q2

REPORT INFORMATION
  Report Type: Spontaneous
  Country: US (occurrence: None)
  Receive Date: 20130419
  Receipt Date: 20130515
  Transmission Date: 20140414
  Serious: Yes (Life-Threatening, Hospitalization, Disabling)
  Sender: FDA-Public Use
  Company Number: 2013035461

PATIENT
  Age: 35 Year
  Sex: Female
  Weight: 78 kg

DRUGS (1)
  1. RHOPHYLAC [Suspect]
     Indication: RHESUS INCOMPATIBILITY
     Dosage: 60000 IU TOTAL, 200 ML OVER 2 HOURS
     Route: 042
     Dates: start: 20130325, end: 20130325

REACTIONS (8)
  - Haemolysis [None]
  - Renal failure acute [None]
  - Haemodialysis [None]
  - Tachycardia [None]
  - Respiratory disorder [None]
  - Chills [None]
  - Pyrexia [None]
  - Disseminated intravascular coagulation [None]
